FAERS Safety Report 6484978-0 (Version None)
Quarter: 2009Q4

REPORT INFORMATION
  Report Type: 
  Country: None (occurrence: None)
  Receive Date: 20091209
  Receipt Date: 20090608
  Transmission Date: 20100525
  Serious: No
  Sender: FDA-Public Use
  Company Number: US-AMGEN-KDL350672

PATIENT
  Sex: Female

DRUGS (4)
  1. ENBREL [Suspect]
     Indication: RHEUMATOID ARTHRITIS
     Route: 058
     Dates: start: 19990801
  2. METHOTREXATE [Concomitant]
     Route: 048
  3. ORENCIA [Concomitant]
  4. HUMIRA [Concomitant]

REACTIONS (4)
  - ARTHRALGIA [None]
  - HERPES ZOSTER [None]
  - INJECTION SITE PAIN [None]
  - RHEUMATOID ARTHRITIS [None]
